FAERS Safety Report 9689206 (Version 1)
Quarter: 2013Q4

REPORT INFORMATION
  Report Type: Spontaneous
  Country: US (occurrence: US)
  Receive Date: 20131114
  Receipt Date: 20131114
  Transmission Date: 20140711
  Serious: Yes (Other)
  Sender: FDA-Public Use
  Company Number: US-CELGENEUS-163-21880-13111816

PATIENT
  Age: 37 Year
  Sex: Male

DRUGS (3)
  1. REVLIMID [Suspect]
     Indication: T-CELL LYMPHOMA
     Route: 048
  2. METHOTREXATE [Suspect]
     Indication: T-CELL LYMPHOMA
     Route: 037
  3. CYTARABINE [Suspect]
     Indication: T-CELL LYMPHOMA
     Route: 065

REACTIONS (2)
  - Paraplegia [Unknown]
  - Urinary retention [Unknown]
